FAERS Safety Report 24540142 (Version 3)
Quarter: 2024Q4

REPORT INFORMATION
  Report Type: Report from Study
  Country: US (occurrence: US)
  Receive Date: 20241023
  Receipt Date: 20241115
  Transmission Date: 20250115
  Serious: No
  Sender: ABBVIE
  Company Number: US-ABBVIE-5961236

PATIENT
  Age: 62 Year
  Sex: Male
  Weight: 108.4 kg

DRUGS (3)
  1. RINVOQ [Suspect]
     Active Substance: UPADACITINIB
     Indication: Colitis ulcerative
     Dosage: FORM STRENGTH: 45 ?FORM STRENGTH UNITS: MILLIGRAM
     Route: 048
     Dates: start: 20240926, end: 20241019
  2. RINVOQ [Suspect]
     Active Substance: UPADACITINIB
     Indication: Colitis ulcerative
     Dosage: DRUG START DATE: 2024
     Route: 048
     Dates: end: 20241015
  3. RINVOQ [Suspect]
     Active Substance: UPADACITINIB
     Indication: Colitis ulcerative
     Route: 048
     Dates: start: 2024

REACTIONS (18)
  - Rectal haemorrhage [Recovering/Resolving]
  - Rash [Recovering/Resolving]
  - Fatigue [Unknown]
  - Pain [Unknown]
  - Abdominal pain upper [Unknown]
  - Pruritus [Recovering/Resolving]
  - Musculoskeletal chest pain [Unknown]
  - Rhinorrhoea [Recovered/Resolved]
  - Headache [Not Recovered/Not Resolved]
  - Fatigue [Recovering/Resolving]
  - Flatulence [Recovering/Resolving]
  - Abdominal pain [Unknown]
  - Abdominal pain [Recovering/Resolving]
  - Constipation [Recovered/Resolved]
  - Dysphonia [Recovered/Resolved]
  - Drug ineffective [Unknown]
  - Faeces hard [Recovered/Resolved]
  - Frequent bowel movements [Recovered/Resolved]

NARRATIVE: CASE EVENT DATE: 20240101
